FAERS Safety Report 12489829 (Version 2)
Quarter: 2016Q3

REPORT INFORMATION
  Report Type: Report from Study
  Country: US (occurrence: US)
  Receive Date: 20160622
  Receipt Date: 20160714
  Transmission Date: 20161109
  Serious: Yes (Hospitalization, Other)
  Sender: FDA-Public Use
  Company Number: US-BAYER-2016-116140

PATIENT
  Age: 38 Year
  Sex: Male

DRUGS (2)
  1. STIVARGA [Suspect]
     Active Substance: REGORAFENIB
     Indication: COLON CANCER
     Dosage: 120 MG, QD WITH LOW FAT BREAKFAST
     Route: 048
     Dates: start: 2016, end: 20160610
  2. STIVARGA [Suspect]
     Active Substance: REGORAFENIB
     Indication: COLON CANCER
     Dosage: 3 TABS DAILY FOR 7 DAYS THEN INCREASE TO 4 TABS DAILY FOR 14 DAYS THEN OFF 7 DAYS
     Dates: start: 20160520, end: 2016

REACTIONS (3)
  - Drug ineffective [None]
  - Decreased appetite [None]
  - Dehydration [Not Recovered/Not Resolved]

NARRATIVE: CASE EVENT DATE: 20160610
